FAERS Safety Report 19496729 (Version 1)
Quarter: 2021Q3

REPORT INFORMATION
  Report Type: Spontaneous
  Country: US (occurrence: US)
  Receive Date: 20210704
  Receipt Date: 20210704
  Transmission Date: 20211014
  Serious: Yes (Hospitalization)
  Sender: FDA-Public Use
  Company Number: None

PATIENT
  Age: 59 Year
  Sex: Female

DRUGS (22)
  1. ASPIRIN. [Concomitant]
     Active Substance: ASPIRIN
  2. BUSPIRONE [Concomitant]
     Active Substance: BUSPIRONE HYDROCHLORIDE
  3. HYDROXYZ HCL [Concomitant]
     Active Substance: HYDROXYZINE HYDROCHLORIDE
  4. GLATIRAMER [Suspect]
     Active Substance: GLATIRAMER
     Indication: MULTIPLE SCLEROSIS
     Dosage: ?          OTHER FREQUENCY:THREE TIMES PER WE;?
     Route: 058
     Dates: start: 20190827
  5. CYANOCOBALAM [Concomitant]
     Active Substance: CYANOCOBALAMIN
  6. DIAZEPAM. [Concomitant]
     Active Substance: DIAZEPAM
  7. HYDROXYCHLOR [Concomitant]
     Active Substance: HYDROXYCHLOROQUINE
  8. CEFDINIR. [Concomitant]
     Active Substance: CEFDINIR
  9. FLUTICASONE. [Concomitant]
     Active Substance: FLUTICASONE
  10. ACARBOSE. [Concomitant]
     Active Substance: ACARBOSE
  11. BELSOMRA [Concomitant]
     Active Substance: SUVOREXANT
  12. BUPROPION. [Concomitant]
     Active Substance: BUPROPION
  13. MONTELUKAST [Concomitant]
     Active Substance: MONTELUKAST SODIUM
  14. DULOXETINE. [Concomitant]
     Active Substance: DULOXETINE
  15. FERROUS SULFA [Concomitant]
  16. LAMOTRIGNE [Concomitant]
  17. BIOTIN [Concomitant]
     Active Substance: BIOTIN
  18. CETRIZINE [Concomitant]
     Active Substance: CETIRIZINE HYDROCHLORIDE
  19. METOPOROLOL [Concomitant]
  20. CEVEMELINE [Concomitant]
  21. ALPRAZOLAM. [Concomitant]
     Active Substance: ALPRAZOLAM
  22. GABAPENTIN. [Concomitant]
     Active Substance: GABAPENTIN

REACTIONS (6)
  - Hypotension [None]
  - Pyrexia [None]
  - Pneumonia [None]
  - Fall [None]
  - Blood copper decreased [None]
  - Blood zinc decreased [None]

NARRATIVE: CASE EVENT DATE: 20210701
